FAERS Safety Report 6616389-9 (Version None)
Quarter: 2010Q1

REPORT INFORMATION
  Report Type: 
  Country: None (occurrence: None)
  Receive Date: 20100305
  Receipt Date: 20100226
  Transmission Date: 20100710
  Serious: Yes (Life-Threatening, Hospitalization)
  Sender: FDA-Public Use
  Company Number: US-RB-003564-10

PATIENT
  Age: 28 Year
  Sex: Female

DRUGS (2)
  1. SUBOXONE [Suspect]
     Dosage: DOSING DETAILS UNKNOWN
     Route: 065
  2. SUBOXONE [Suspect]
     Dosage: DOSING DETAILS UNKNOWN
     Route: 042

REACTIONS (3)
  - COMA [None]
  - INCORRECT ROUTE OF DRUG ADMINISTRATION [None]
  - OVERDOSE [None]
